FAERS Safety Report 8483197-6 (Version None)
Quarter: 2012Q3

REPORT INFORMATION
  Report Type: 
  Country: None (occurrence: None)
  Receive Date: 20120702
  Receipt Date: 20120622
  Transmission Date: 20120928
  Serious: Yes (Other)
  Sender: FDA-Public Use
  Company Number: US-BAYER-2012-063028

PATIENT
  Age: 73 Year
  Sex: Male
  Weight: 93 kg

DRUGS (5)
  1. CITRACAL PETITES [Suspect]
     Dosage: 1 DF, QD
     Route: 048
     Dates: start: 20120621
  2. ASPIRIN [Suspect]
     Dosage: 1 DF, OTHER
     Route: 048
  3. CITRACAL CALCIUM + D SLOW RELEASE 1200 [Suspect]
     Dosage: 1 DF, QD
     Route: 048
     Dates: start: 20120620, end: 20120621
  4. DILANTIN [Concomitant]
  5. AVAPRO [Concomitant]

REACTIONS (3)
  - ANGINA PECTORIS [None]
  - SPEECH DISORDER [None]
  - FEELING DRUNK [None]
